FAERS Safety Report 6427140-X (Version None)
Quarter: 2009Q4

REPORT INFORMATION
  Report Type: 
  Country: None (occurrence: None)
  Receive Date: 20091026
  Receipt Date: 20090717
  Transmission Date: 20100525
  Serious: No
  Sender: FDA-Public Use
  Company Number: FPI-09-FIR-0202

PATIENT
  Sex: Male

DRUGS (1)
  1. FIRMAGON [Suspect]
     Dosage: 240MG SC (2 X 120MG)
     Route: 058
     Dates: start: 20090713

REACTIONS (1)
  - INJECTION SITE REACTION [None]
